FAERS Safety Report 9521669 (Version 20)
Quarter: 2019Q2

REPORT INFORMATION
  Report Type: Report from Study
  Country: CA (occurrence: CA)
  Receive Date: 20130913
  Receipt Date: 20190530
  Transmission Date: 20190711
  Serious: Yes (Death, Hospitalization)
  Sender: FDA-Public Use
  Company Number: PHHY2012CA066231

PATIENT
  Age: 79 Year
  Sex: Male

DRUGS (9)
  1. SANDOSTATIN LAR DEPOT [Suspect]
     Active Substance: OCTREOTIDE ACETATE
     Dosage: 40 MG, QW3
     Route: 030
  2. FERROUS SULFATE. [Concomitant]
     Active Substance: FERROUS SULFATE
     Indication: PRODUCT USED FOR UNKNOWN INDICATION
     Dosage: 300 MG, QD
     Route: 065
  3. REFRESH TEARS [Concomitant]
     Active Substance: CARBOXYMETHYLCELLULOSE SODIUM
     Indication: PRODUCT USED FOR UNKNOWN INDICATION
     Dosage: 1-2 DROPS ON EACH EYE, PER DAY
     Route: 065
  4. TEVA TAMSULOSIN CR [Concomitant]
     Indication: PRODUCT USED FOR UNKNOWN INDICATION
     Dosage: 0.4 MG, QD
     Route: 065
  5. SANDOSTATIN LAR DEPOT [Suspect]
     Active Substance: OCTREOTIDE ACETATE
     Dosage: 30 MG, QMO
     Route: 030
  6. SANDOSTATIN LAR DEPOT [Suspect]
     Active Substance: OCTREOTIDE ACETATE
     Indication: CARCINOID TUMOUR
     Dosage: 20 MG, QMO
     Route: 030
     Dates: start: 20120628
  7. SANDOSTATIN LAR DEPOT [Suspect]
     Active Substance: OCTREOTIDE ACETATE
     Dosage: 60 MG, Q3W
     Route: 030
  8. SANDOSTATIN [Suspect]
     Active Substance: OCTREOTIDE ACETATE
     Indication: CARCINOID TUMOUR
     Dosage: 75 UG, TID X 2 WEEKS
     Route: 058
     Dates: start: 201206, end: 2012
  9. RIVA DUTASTERIDE [Concomitant]
     Indication: PRODUCT USED FOR UNKNOWN INDICATION
     Dosage: 0.5 MG, QD
     Route: 065

REACTIONS (23)
  - Diarrhoea [Unknown]
  - Inappropriate schedule of product administration [Unknown]
  - Blood pressure diastolic decreased [Unknown]
  - Anxiety disorder [Unknown]
  - Ocular hyperaemia [Unknown]
  - Fatigue [Unknown]
  - Chromaturia [Unknown]
  - Weight increased [Unknown]
  - Blood pressure systolic increased [Unknown]
  - Underdose [Unknown]
  - Vomiting [Unknown]
  - Hernia pain [Unknown]
  - Gastrointestinal tract irritation [Unknown]
  - Confusional state [Unknown]
  - Nausea [Unknown]
  - Death [Fatal]
  - Injection site pain [Not Recovered/Not Resolved]
  - Rhinorrhoea [Unknown]
  - Metastases to liver [Unknown]
  - Heart rate decreased [Unknown]
  - Liver disorder [Unknown]
  - Sneezing [Unknown]
  - Abdominal hernia [Unknown]

NARRATIVE: CASE EVENT DATE: 20120628
